FAERS Safety Report 20719606 (Version 8)
Quarter: 2024Q4

REPORT INFORMATION
  Report Type: Report from Study
  Country: JP (occurrence: JP)
  Receive Date: 20220418
  Receipt Date: 20241009
  Transmission Date: 20250115
  Serious: Yes (Death, Hospitalization, Other)
  Sender: ROCHE
  Company Number: JP-CHUGAI-2022012666

PATIENT
  Age: 53 Year
  Sex: Female
  Weight: 81.0 kg

DRUGS (9)
  1. ENSPRYNG [Suspect]
     Active Substance: SATRALIZUMAB-MWGE
     Indication: Neuromyelitis optica spectrum disorder
     Dosage: UNK
     Route: 058
  2. ENSPRYNG [Suspect]
     Active Substance: SATRALIZUMAB-MWGE
     Route: 058
     Dates: start: 20201113
  3. PREDONINE [Suspect]
     Active Substance: PREDNISOLONE
     Indication: Neuromyelitis optica spectrum disorder
     Dosage: 25MG/DAY
     Route: 048
     Dates: start: 20201113
  4. PREDONINE [Suspect]
     Active Substance: PREDNISOLONE
     Dosage: 20MG/DAY
     Route: 048
     Dates: start: 20210514
  5. PREDONINE [Suspect]
     Active Substance: PREDNISOLONE
     Dosage: 15 MG/DAY
     Route: 048
     Dates: end: 20230513
  6. PREDNISOLONE [Suspect]
     Active Substance: PREDNISOLONE
     Indication: Neuromyelitis optica spectrum disorder
     Route: 065
  7. PREDNISOLONE [Suspect]
     Active Substance: PREDNISOLONE
     Route: 065
     Dates: end: 20230513
  8. PREDNISOLONE [Suspect]
     Active Substance: PREDNISOLONE
     Route: 065
  9. PREDNISOLONE [Suspect]
     Active Substance: PREDNISOLONE
     Route: 065

REACTIONS (9)
  - Escherichia urinary tract infection [Recovered/Resolved]
  - Herpes zoster oticus [Recovered/Resolved with Sequelae]
  - Diarrhoea [Recovered/Resolved]
  - Cystitis [Recovered/Resolved]
  - Cataract nuclear [Recovered/Resolved]
  - Cataract subcapsular [Recovered/Resolved]
  - Clostridium test positive [Unknown]
  - Cerebral haemorrhage [Unknown]
  - Brain death [Fatal]

NARRATIVE: CASE EVENT DATE: 20210105
